FAERS Safety Report 15617645 (Version 1)
Quarter: 2018Q4

REPORT INFORMATION
  Report Type: Spontaneous
  Country: CA (occurrence: CA)
  Receive Date: 20181114
  Receipt Date: 20181114
  Transmission Date: 20190205
  Serious: Yes (Hospitalization)
  Sender: FDA-Public Use
  Company Number: CA-AMGEN-CANSP2018158823

PATIENT
  Age: 78 Year
  Sex: Male
  Weight: 72.56 kg

DRUGS (7)
  1. REPATHA [Suspect]
     Active Substance: EVOLOCUMAB
     Indication: BLOOD CHOLESTEROL INCREASED
     Dosage: 140 MG, Q2WK
     Route: 058
  2. COVERSYL [Concomitant]
     Active Substance: PERINDOPRIL
     Dosage: 8 MG, UNK
  3. SANDOZ-BISOPROLOL [Concomitant]
     Active Substance: BISOPROLOL FUMARATE
  4. ASPIRIN. [Concomitant]
     Active Substance: ASPIRIN
     Dosage: UNK
  5. FINASTERIDE. [Concomitant]
     Active Substance: FINASTERIDE
  6. NORVASC [Concomitant]
     Active Substance: AMLODIPINE BESYLATE
     Dosage: 5 MG, UNK
  7. SANDOZ EZETIMIBE [Concomitant]
     Active Substance: EZETIMIBE

REACTIONS (4)
  - Chills [Recovered/Resolved]
  - Injection site erythema [Recovered/Resolved]
  - Urticaria [Recovered/Resolved]
  - Rash [Recovered/Resolved]
